FAERS Safety Report 15892579 (Version 1)
Quarter: 2019Q1

REPORT INFORMATION
  Report Type: Report from Study
  Country: US (occurrence: US)
  Receive Date: 20190130
  Receipt Date: 20190130
  Transmission Date: 20190417
  Serious: No
  Sender: FDA-Public Use
  Company Number: US-EXELIXIS-CABO-18015992

PATIENT
  Sex: Male

DRUGS (1)
  1. CABOMETYX [Suspect]
     Active Substance: CABOZANTINIB S-MALATE
     Indication: BENIGN NEOPLASM OF ADRENAL GLAND
     Dosage: 60 MG, QD (EMPTY STOMACH)
     Dates: start: 20180907, end: 20181004

REACTIONS (9)
  - Back pain [Unknown]
  - Asthenia [Unknown]
  - Constipation [Recovered/Resolved]
  - Nausea [Unknown]
  - Headache [Unknown]
  - Off label use [Unknown]
  - Pain [Unknown]
  - Decreased appetite [Unknown]
  - Fatigue [Unknown]

NARRATIVE: CASE EVENT DATE: 2018
